FAERS Safety Report 7756757-5 (Version None)
Quarter: 2011Q3

REPORT INFORMATION
  Report Type: 
  Country: None (occurrence: None)
  Receive Date: 20110916
  Receipt Date: 20110906
  Transmission Date: 20111222
  Serious: Yes (Hospitalization)
  Sender: FDA-Public Use
  Company Number: US-BAYER-2011-017674

PATIENT
  Age: 36 Year
  Sex: Female
  Weight: 74.83 kg

DRUGS (6)
  1. LEVOTHYROXINE SODIUM [Concomitant]
     Indication: HYPOTHYROIDISM
     Dosage: 200 MCG/24HR, UNK
     Dates: start: 20050630, end: 20090809
  2. SYNTHROID [Concomitant]
     Indication: HYPOTHYROIDISM
  3. YASMIN [Suspect]
     Indication: CONTRACEPTION
  4. YASMIN [Suspect]
     Indication: ACNE
     Dosage: UNK
     Dates: start: 20030801, end: 20081101
  5. THYROID TAB [Concomitant]
     Indication: HYPOTHYROIDISM
     Dosage: 15 MG, UNK
     Dates: start: 20020918, end: 20050324
  6. CELEBREX [Concomitant]
     Dosage: UNK
     Dates: start: 20031201

REACTIONS (3)
  - PAIN [None]
  - INJURY [None]
  - PANCREATITIS [None]
